FAERS Safety Report 25040320 (Version 2)
Quarter: 2025Q2

REPORT INFORMATION
  Report Type: Spontaneous
  Country: US (occurrence: US)
  Receive Date: 20250305
  Receipt Date: 20250504
  Transmission Date: 20250716
  Serious: Yes (Hospitalization, Other)
  Sender: ALEXION PHARMACEUTICALS
  Company Number: US-AstraZeneca-CH-00816330AP

PATIENT

DRUGS (1)
  1. BREZTRI [Suspect]
     Active Substance: BUDESONIDE\FORMOTEROL\GLYCOPYRROLATE
     Route: 065

REACTIONS (7)
  - Wrong technique in product usage process [Unknown]
  - Dehydration [Unknown]
  - Overdose [Unknown]
  - Device inappropriate shock delivery [Unknown]
  - Internal haemorrhage [Unknown]
  - Device malfunction [Unknown]
  - Device delivery system issue [Unknown]
